FAERS Safety Report 12957787 (Version 1)
Quarter: 2016Q4

REPORT INFORMATION
  Report Type: Report from Study
  Country: None (occurrence: PR)
  Receive Date: 20161118
  Receipt Date: 20161118
  Transmission Date: 20170207
  Serious: Yes (Hospitalization)
  Sender: FDA-Public Use
  Company Number: PR-ABBVIE-16K-131-1743447-00

PATIENT
  Age: 18 Year
  Sex: Female
  Weight: 52.66 kg

DRUGS (7)
  1. HUMIRA [Suspect]
     Active Substance: ADALIMUMAB
     Indication: CROHN^S DISEASE
     Route: 058
     Dates: start: 20150617, end: 201512
  2. IRON [Concomitant]
     Active Substance: IRON
     Indication: ANAEMIA
     Route: 048
  3. PREDNISONE. [Suspect]
     Active Substance: PREDNISONE
     Indication: CROHN^S DISEASE
     Dosage: GRADUALLY UNTIL DISCONTINUED
     Route: 048
  4. HUMIRA [Suspect]
     Active Substance: ADALIMUMAB
     Route: 058
     Dates: start: 201512
  5. OMEPRAZOLE. [Concomitant]
     Active Substance: OMEPRAZOLE
     Indication: CROHN^S DISEASE
     Route: 048
  6. METHOTREXATE. [Concomitant]
     Active Substance: METHOTREXATE
     Indication: PRODUCT USED FOR UNKNOWN INDICATION
     Route: 058
  7. FOLIC ACID. [Concomitant]
     Active Substance: FOLIC ACID
     Indication: CROHN^S DISEASE
     Route: 048

REACTIONS (13)
  - Anal inflammation [Recovered/Resolved]
  - Osteonecrosis [Not Recovered/Not Resolved]
  - Crohn^s disease [Recovered/Resolved]
  - Infection [Recovered/Resolved]
  - Rash macular [Not Recovered/Not Resolved]
  - Mucous membrane disorder [Recovered/Resolved]
  - Anal abscess [Recovered/Resolved]
  - Crohn^s disease [Not Recovered/Not Resolved]
  - Haemoglobin decreased [Recovered/Resolved]
  - Rectal haemorrhage [Recovered/Resolved]
  - Pain [Recovered/Resolved]
  - Arthralgia [Recovered/Resolved]
  - Pruritus [Not Recovered/Not Resolved]

NARRATIVE: CASE EVENT DATE: 201512
